FAERS Safety Report 21567713 (Version 1)
Quarter: 2022Q4

REPORT INFORMATION
  Report Type: Spontaneous
  Country: CN (occurrence: None)
  Receive Date: 20221108
  Receipt Date: 20221108
  Transmission Date: 20230113
  Serious: Yes (Other)
  Sender: FDA-Public Use
  Company Number: 2022A348894

PATIENT
  Age: 50 Year
  Sex: Male
  Weight: 76 kg

DRUGS (6)
  1. IMFINZI [Suspect]
     Active Substance: DURVALUMAB
     Indication: Small cell lung cancer extensive stage
     Dosage: 1000 MG/CYCLE
     Route: 042
     Dates: start: 20211030, end: 20211030
  2. ETOPOSIDE [Concomitant]
     Active Substance: ETOPOSIDE
  3. CARBOPLATIN [Concomitant]
     Active Substance: CARBOPLATIN
  4. CISPLATIN [Concomitant]
     Active Substance: CISPLATIN
  5. ESSENTIALE [Concomitant]
     Dates: start: 202110
  6. ENTECAVIR [Concomitant]
     Active Substance: ENTECAVIR
     Dates: start: 202110

REACTIONS (3)
  - Metastases to central nervous system [Unknown]
  - Radiation pneumonitis [Unknown]
  - Gastrooesophageal reflux disease [Recovering/Resolving]
